FAERS Safety Report 11246215 (Version 1)
Quarter: 2015Q3

REPORT INFORMATION
  Report Type: Spontaneous
  Country: US (occurrence: None)
  Receive Date: 20150706
  Receipt Date: 20150706
  Transmission Date: 20151125
  Serious: Yes (Life-Threatening, Other)
  Sender: FDA-Public Use
  Company Number: None

PATIENT
  Age: 60 Year
  Sex: Female

DRUGS (1)
  1. LAMOTRIGINE 200 MG [Suspect]
     Active Substance: LAMOTRIGINE
     Indication: EPILEPSY
     Dosage: 200 MG, Q12H, ORAL
     Route: 048
     Dates: start: 20150401, end: 20150702

REACTIONS (5)
  - Product substitution issue [None]
  - Dizziness [None]
  - Unevaluable event [None]
  - Somnolence [None]
  - Seizure [None]

NARRATIVE: CASE EVENT DATE: 20150702
